FAERS Safety Report 17873354 (Version 1)
Quarter: 2020Q2

REPORT INFORMATION
  Report Type: Report from Study
  Country: None (occurrence: US)
  Receive Date: 20200608
  Receipt Date: 20200608
  Transmission Date: 20200714
  Serious: Yes (Other)
  Sender: FDA-Public Use
  Company Number: US-ABBVIE-20K-163-3432848-00

PATIENT
  Sex: Female

DRUGS (1)
  1. HUMIRA [Suspect]
     Active Substance: ADALIMUMAB
     Indication: RHEUMATOID ARTHRITIS
     Route: 058

REACTIONS (8)
  - Poor quality sleep [Unknown]
  - Procedural pain [Unknown]
  - Decreased appetite [Unknown]
  - Depression [Unknown]
  - Crying [Not Recovered/Not Resolved]
  - Surgery [Unknown]
  - Pain [Unknown]
  - Procedural haemorrhage [Unknown]
